FAERS Safety Report 23991597 (Version 4)
Quarter: 2025Q3

REPORT INFORMATION
  Report Type: Spontaneous
  Country: JP (occurrence: JP)
  Receive Date: 20240619
  Receipt Date: 20250728
  Transmission Date: 20251020
  Serious: Yes (Hospitalization, Other)
  Sender: EISAI
  Company Number: JP-Eisai-202403092_LEN-RCC_P_1

PATIENT
  Age: 77 Year
  Sex: Female

DRUGS (2)
  1. LENVATINIB [Suspect]
     Active Substance: LENVATINIB
     Indication: Renal cell carcinoma
  2. PEMBROLIZUMAB [Suspect]
     Active Substance: PEMBROLIZUMAB
     Indication: Renal cell carcinoma

REACTIONS (5)
  - Type 1 diabetes mellitus [Unknown]
  - Primary adrenal insufficiency [Unknown]
  - Blood corticotrophin abnormal [Unknown]
  - Primary hypothyroidism [Unknown]
  - Hypertension [Unknown]
